FAERS Safety Report 8380214-9 (Version None)
Quarter: 2012Q2

REPORT INFORMATION
  Report Type: 
  Country: None (occurrence: None)
  Receive Date: 20120523
  Receipt Date: 20120515
  Transmission Date: 20120825
  Serious: Yes (Other)
  Sender: FDA-Public Use
  Company Number: PHEH2012US008976

PATIENT
  Sex: Male

DRUGS (1)
  1. VALTURNA [Suspect]
     Indication: HYPERTENSION
     Dosage: 1 DF (300 MG ALIS AND 320 MG VALS), QD
     Dates: start: 20110309, end: 20120316

REACTIONS (2)
  - RENAL DISORDER [None]
  - DIABETES MELLITUS [None]
